FAERS Safety Report 4757545-4 (Version None)
Quarter: 2005Q3

REPORT INFORMATION
  Report Type: 
  Country: None (occurrence: None)
  Receive Date: 20050830
  Receipt Date: 20050824
  Transmission Date: 20060218
  Serious: Yes (Other)
  Sender: FDA-Public Use
  Company Number: 200510480BNE

PATIENT
  Age: 1 Month
  Sex: Male

DRUGS (6)
  1. CIPROFLOXACIN [Suspect]
     Indication: OSTEOMYELITIS
     Dosage: 8.1 MG, BID
     Dates: start: 20050727, end: 20050729
  2. CIPROFLOXACIN [Suspect]
     Indication: OSTEOMYELITIS
     Dosage: 8.1 MG, BID
     Dates: start: 20050801
  3. FLUCLOXACILLIN [Concomitant]
  4. NYSTATIN [Concomitant]
  5. CAFFEINE CITRATE [Concomitant]
  6. PARACETAMOL [Concomitant]

REACTIONS (2)
  - CHROMATURIA [None]
  - FAECES DISCOLOURED [None]
